FAERS Safety Report 13034209 (Version 1)
Quarter: 2016Q4

REPORT INFORMATION
  Report Type: Spontaneous
  Country: GB (occurrence: US)
  Receive Date: 20161215
  Receipt Date: 20161215
  Transmission Date: 20170207
  Serious: Yes (Death)
  Sender: FDA-Public Use
  Company Number: None

PATIENT
  Age: 50 Year
  Sex: Female
  Weight: 63 kg

DRUGS (6)
  1. PARACETAMOL [Concomitant]
     Active Substance: ACETAMINOPHEN
  2. GLYCERINE TRINITRATE [Concomitant]
  3. NEUROFEN [Concomitant]
     Active Substance: IBUPROFEN
  4. RAMIPRIL. [Concomitant]
     Active Substance: RAMIPRIL
  5. ASPIRIN. [Suspect]
     Active Substance: ASPIRIN
     Indication: PAIN
     Dosage: ?          QUANTITY:2 TABLET(S);OTHER FREQUENCY:SINGLE DOSE;?
     Route: 048
     Dates: start: 20150122, end: 20150122
  6. NITROUS OXIDE. [Concomitant]
     Active Substance: NITROUS OXIDE

REACTIONS (1)
  - Aortic dissection rupture [None]

NARRATIVE: CASE EVENT DATE: 20150122
